FAERS Safety Report 5661918-5 (Version None)
Quarter: 2008Q1

REPORT INFORMATION
  Report Type: 
  Country: None (occurrence: None)
  Receive Date: 20080201
  Receipt Date: 20060814
  Transmission Date: 20080703
  Serious: No
  Sender: FDA-Public Use
  Company Number: 20084633

PATIENT
  Sex: Female

DRUGS (1)
  1. LIORESAL [Suspect]
     Indication: MUSCLE SPASTICITY
     Dosage: DAILY, INTRATHECAL
     Route: 037

REACTIONS (5)
  - DRUG INEFFECTIVE [None]
  - HYPERHIDROSIS [None]
  - HYPERTONIA [None]
  - OPISTHOTONUS [None]
  - URINARY RETENTION [None]
